FAERS Safety Report 8523170-2 (Version None)
Quarter: 2012Q3

REPORT INFORMATION
  Report Type: 
  Country: None (occurrence: None)
  Receive Date: 20120709
  Receipt Date: 20120615
  Transmission Date: 20120928
  Serious: Yes (Death)
  Sender: FDA-Public Use
  Company Number: 20120014

PATIENT
  Age: 63 Year
  Sex: Male

DRUGS (2)
  1. CHEMOTHERAPY, (UNKNOWN AGENT, UNKNOWN DOSE OR DURATION) [Concomitant]
  2. SUBSYS [Suspect]
     Indication: NEOPLASM MALIGNANT
     Dosage: 200MCG/SL 4 DOSES
     Route: 060

REACTIONS (1)
  - PANCREATIC CARCINOMA [None]
